FAERS Safety Report 4765146-7 (Version None)
Quarter: 2005Q3

REPORT INFORMATION
  Report Type: 
  Country: None (occurrence: None)
  Receive Date: 20050906
  Receipt Date: 20050824
  Transmission Date: 20060218
  Serious: Yes (Other)
  Sender: FDA-Public Use
  Company Number: 2005110954

PATIENT
  Age: 75 Year
  Sex: Female

DRUGS (2)
  1. LIPITOR [Suspect]
     Indication: ILL-DEFINED DISORDER
  2. VITAMINS WITH MINERALS (VITAMINS WITH MINERALS) [Suspect]
     Indication: ILL-DEFINED DISORDER

REACTIONS (2)
  - CONSTIPATION [None]
  - MACULAR DEGENERATION [None]
